FAERS Safety Report 9200583 (Version 1)
Quarter: 2013Q1

REPORT INFORMATION
  Report Type: Spontaneous
  Country: US (occurrence: US)
  Receive Date: 20130329
  Receipt Date: 20130329
  Transmission Date: 20140127
  Serious: Yes (Hospitalization, Other)
  Sender: FDA-Public Use
  Company Number: US-PFIZER INC-HQWYE025515DEC05

PATIENT
  Age: 29 Year
  Sex: Male

DRUGS (1)
  1. IBUPROFEN [Suspect]
     Dosage: ^APPROXIMATELY 80,000 MG^
     Route: 048

REACTIONS (9)
  - Overdose [Unknown]
  - Nausea [Unknown]
  - Vomiting [Unknown]
  - Mental status changes [Unknown]
  - Grand mal convulsion [Unknown]
  - Electrocardiogram QRS complex prolonged [Recovered/Resolved]
  - Electrocardiogram QT prolonged [Recovered/Resolved]
  - Hypotension [Recovered/Resolved]
  - Metabolic acidosis [Unknown]
